FAERS Safety Report 13600071 (Version 2)
Quarter: 2017Q2

REPORT INFORMATION
  Report Type: Spontaneous
  Country: CN (occurrence: CN)
  Receive Date: 20170601
  Receipt Date: 20170616
  Transmission Date: 20170830
  Serious: Yes (Other)
  Sender: FDA-Public Use
  Company Number: CN-B.I. PHARMACEUTICALS,INC./RIDGEFIELD-2017-BI-029728

PATIENT
  Age: 44 Year
  Sex: Female

DRUGS (2)
  1. POLYENE PHOSPHATIDYLCHOLINE [Concomitant]
     Active Substance: PHOSPHOLIPID
     Indication: PRODUCT USED FOR UNKNOWN INDICATION
     Route: 065
  2. PRADAXA [Suspect]
     Active Substance: DABIGATRAN ETEXILATE MESYLATE
     Indication: DEEP VEIN THROMBOSIS
     Route: 048
     Dates: start: 20170510, end: 20170522

REACTIONS (4)
  - Eye swelling [Recovering/Resolving]
  - Product use in unapproved indication [Unknown]
  - Rash generalised [Recovering/Resolving]
  - Hypotension [Recovered/Resolved]

NARRATIVE: CASE EVENT DATE: 20170522
